FAERS Safety Report 6413426-1 (Version None)
Quarter: 2009Q4

REPORT INFORMATION
  Report Type: 
  Country: None (occurrence: None)
  Receive Date: 20091026
  Receipt Date: 20091014
  Transmission Date: 20100525
  Serious: Yes (Other)
  Sender: FDA-Public Use
  Company Number: GB-BAYER-200934273GPV

PATIENT
  Age: 38 Year
  Sex: Female
  Weight: 69 kg

DRUGS (2)
  1. MIRENA [Suspect]
     Indication: CONTRACEPTION
  2. MIGARD [Concomitant]
     Indication: MIGRAINE

REACTIONS (1)
  - CONVULSION [None]
